FAERS Safety Report 8895973 (Version 1)
Quarter: 2012Q4

REPORT INFORMATION
  Report Type: 
  Country: JP (occurrence: JP)
  Receive Date: 20121107
  Receipt Date: 20121107
  Transmission Date: 20130627
  Serious: Yes (Life-Threatening, Hospitalization)
  Sender: FDA-Public Use
  Company Number: JP-BAYER-2012-090891

PATIENT
  Age: 70 Year
  Sex: Male
  Weight: 51 kg

DRUGS (8)
  1. NEXAVAR [Suspect]
     Indication: CARCINOMA HEPATOCELLULAR
     Dosage: Daily dose 800 mg
     Route: 048
     Dates: start: 20120817, end: 20120829
  2. DOGMATYL [Concomitant]
  3. CONSTAN [Concomitant]
     Route: 048
  4. PROHEPARUM [Concomitant]
     Dosage: UNK
     Route: 048
  5. MAGNESIUM OXIDE [Concomitant]
     Dosage: UNK
     Route: 048
  6. LAC-B [Concomitant]
     Route: 048
  7. URSO [Concomitant]
     Dosage: UNK
     Route: 048
  8. MARZULENE [Concomitant]
     Route: 048

REACTIONS (1)
  - Rhabdomyolysis [Recovering/Resolving]
